FAERS Safety Report 7497747-X (Version None)
Quarter: 2011Q2

REPORT INFORMATION
  Report Type: 
  Country: None (occurrence: None)
  Receive Date: 20110523
  Receipt Date: 20110513
  Transmission Date: 20111010
  Serious: Yes (Other)
  Sender: FDA-Public Use
  Company Number: US-AMGEN-USASP2011015255

PATIENT
  Sex: Female

DRUGS (1)
  1. PROLIA [Suspect]
     Indication: OSTEOPOROSIS POSTMENOPAUSAL

REACTIONS (5)
  - OSTEONECROSIS OF JAW [None]
  - TOOTH LOSS [None]
  - TOOTH ABSCESS [None]
  - DENTAL FISTULA [None]
  - TOOTH EXTRACTION [None]
